FAERS Safety Report 4642272-4 (Version None)
Quarter: 2005Q2

REPORT INFORMATION
  Report Type: 
  Country: None (occurrence: None)
  Receive Date: 20050420
  Receipt Date: 20050408
  Transmission Date: 20051028
  Serious: No
  Sender: FDA-Public Use
  Company Number: 2005AP02189

PATIENT

DRUGS (1)
  1. NEXIUM [Suspect]

REACTIONS (1)
  - RENAL FAILURE [None]
